FAERS Safety Report 4809112-1 (Version None)
Quarter: 2005Q4

REPORT INFORMATION
  Report Type: 
  Country: None (occurrence: None)
  Receive Date: 20051024
  Receipt Date: 20051024
  Transmission Date: 20060501
  Serious: Yes (Other)
  Sender: FDA-Public Use
  Company Number: None

PATIENT
  Sex: Male
  Weight: 55 kg

DRUGS (4)
  1. NAFCILLIN 10 G SANDOZ [Suspect]
     Indication: OSTEOMYELITIS
     Dosage: 2 G Q 4 HRS IV
     Route: 042
     Dates: start: 20050801, end: 20050826
  2. NAFCILLIN 2 G SANDOZ [Suspect]
  3. NAFCILLIN 2 G SANDOZ [Suspect]
  4. NAFCILLIN 2 G SANDOZ [Suspect]

REACTIONS (1)
  - NEPHRITIS [None]
